FAERS Safety Report 14514619 (Version 2)
Quarter: 2018Q1

REPORT INFORMATION
  Report Type: Report from Study
  Country: US (occurrence: US)
  Receive Date: 20180209
  Receipt Date: 20180214
  Transmission Date: 20180509
  Serious: Yes (Hospitalization)
  Sender: FDA-Public Use
  Company Number: US-ACTELION-A-NJ2018-165996

PATIENT
  Age: 63 Year
  Sex: Female

DRUGS (2)
  1. ASPIRIN. [Suspect]
     Active Substance: ASPIRIN
     Indication: PRODUCT USED FOR UNKNOWN INDICATION
     Dosage: UNK
     Route: 065
     Dates: start: 20171125
  2. OPSUMIT [Suspect]
     Active Substance: MACITENTAN
     Indication: PULMONARY ARTERIAL HYPERTENSION
     Dosage: 10 MG, UNK
     Route: 048
     Dates: start: 20161205

REACTIONS (26)
  - Packed red blood cell transfusion [Unknown]
  - Blood bilirubin increased [Recovered/Resolved]
  - Blood pressure decreased [Recovered/Resolved with Sequelae]
  - Mean arterial pressure decreased [Recovered/Resolved with Sequelae]
  - Melaena [Recovered/Resolved with Sequelae]
  - Chills [Recovered/Resolved]
  - Leukocytosis [Unknown]
  - Pulmonary arterial hypertension [Recovering/Resolving]
  - Fatigue [Recovered/Resolved with Sequelae]
  - Sepsis [Recovered/Resolved]
  - Haemoglobin decreased [Recovered/Resolved with Sequelae]
  - Tachycardia [Recovered/Resolved]
  - Dyspnoea [Unknown]
  - Heart valve incompetence [Unknown]
  - Central venous catheterisation [Unknown]
  - Pyrexia [Recovered/Resolved]
  - Pneumonia [Unknown]
  - Cough [Unknown]
  - Streptococcus test positive [Unknown]
  - Hepatic enzyme increased [Recovered/Resolved]
  - Aspartate aminotransferase increased [Recovered/Resolved]
  - Upper gastrointestinal haemorrhage [Recovered/Resolved with Sequelae]
  - Normocytic anaemia [Recovered/Resolved with Sequelae]
  - Tachypnoea [Recovered/Resolved]
  - Condition aggravated [Recovered/Resolved]
  - Asthenia [Unknown]

NARRATIVE: CASE EVENT DATE: 20171125
